FAERS Safety Report 6229806-3 (Version None)
Quarter: 2009Q2

REPORT INFORMATION
  Report Type: 
  Country: None (occurrence: None)
  Receive Date: 20090615
  Receipt Date: 20090519
  Transmission Date: 20091009
  Serious: Yes (Other)
  Sender: FDA-Public Use
  Company Number: GB-PFIZER INC-2009195579

PATIENT
  Age: 65 Year

DRUGS (5)
  1. SUTENT [Suspect]
     Indication: RENAL CANCER
     Dosage: 50 MG, 1X/DAY
     Route: 048
     Dates: start: 20081101
  2. AMITRIPTYLINE HYDROCHLORIDE [Concomitant]
     Indication: RHEUMATOID ARTHRITIS
     Dosage: 25 MG, 1X/DAY
     Route: 048
  3. CALCICHEW-D3 [Concomitant]
     Indication: OSTEOPOROSIS
     Route: 048
  4. FENOFIBRATE [Concomitant]
     Indication: BLOOD TRIGLYCERIDES INCREASED
     Dosage: 160 MG, UNK
     Route: 048
  5. CELECOXIB [Concomitant]
     Indication: RHEUMATOID ARTHRITIS
     Dosage: 200 UNK, UNK
     Route: 048

REACTIONS (10)
  - AGEUSIA [None]
  - ASTHENIA [None]
  - BLISTER [None]
  - ERYTHEMA [None]
  - LETHARGY [None]
  - ORAL PAIN [None]
  - PERIORBITAL OEDEMA [None]
  - STOMATITIS [None]
  - SWELLING FACE [None]
  - WHEEZING [None]
